FAERS Safety Report 19956914 (Version 1)
Quarter: 2021Q4

REPORT INFORMATION
  Report Type: Spontaneous
  Country: US (occurrence: US)
  Receive Date: 20211014
  Receipt Date: 20211014
  Transmission Date: 20220303
  Serious: Yes (Other)
  Sender: FDA-Public Use
  Company Number: US-NOVARTISPH-NVSC2021US234158

PATIENT

DRUGS (2)
  1. DOCETAXEL [Suspect]
     Active Substance: DOCETAXEL
     Indication: Sarcoma
     Dosage: OVER 30 MIN ON DAY 1, FOR 14 DAYS (1 CYCLE), CYCLIC
     Route: 065
  2. GEMCITABINE [Suspect]
     Active Substance: GEMCITABINE
     Indication: Sarcoma
     Dosage: 10 MG/M2 PER MINUTE ON DAY 1 AND 8 FOR 14 DAYS (1 CYCLE), CYCLIC
     Route: 065

REACTIONS (2)
  - Febrile neutropenia [Unknown]
  - Product use in unapproved indication [Unknown]
